FAERS Safety Report 8495094 (Version 2)
Quarter: 2012Q4

REPORT INFORMATION
  Report Type: 
  Country: US (occurrence: US)
  Receive Date: 20120403
  Receipt Date: 20120921
  Transmission Date: 20130627
  Serious: Yes (Hospitalization, Other)
  Sender: FDA-Public Use
  Company Number: CHPA2012US005571

PATIENT
  Age: 57 Year
  Sex: Male

DRUGS (2)
  1. MAALOX QUICK DISSOLVE [Suspect]
     Indication: DYSPEPSIA
     Dosage: UNK, QD
     Route: 048
  2. ADVIL                              /00044201/ [Concomitant]

REACTIONS (2)
  - Colon cancer [Not Recovered/Not Resolved]
  - Incorrect drug administration duration [Unknown]
